FAERS Safety Report 15604831 (Version 3)
Quarter: 2018Q4

REPORT INFORMATION
  Report Type: Spontaneous
  Country: US (occurrence: US)
  Receive Date: 20181111
  Receipt Date: 20181204
  Transmission Date: 20190205
  Serious: Yes (Other)
  Sender: FDA-Public Use
  Company Number: US-AMGEN-USASP2018156744

PATIENT
  Age: 74 Year
  Sex: Male

DRUGS (4)
  1. REPATHA [Suspect]
     Active Substance: EVOLOCUMAB
     Indication: BLOOD CHOLESTEROL INCREASED
     Dosage: 140 MG, Q2WK
     Route: 065
     Dates: start: 20181031
  2. GABAPENTIN. [Concomitant]
     Active Substance: GABAPENTIN
  3. CRANBERRY. [Concomitant]
     Active Substance: CRANBERRY
  4. APPLE CIDER VINEGAR [Concomitant]
     Active Substance: APPLE CIDER VINEGAR
     Dosage: UNK

REACTIONS (4)
  - Feeling hot [Unknown]
  - Therapeutic response unexpected [Recovering/Resolving]
  - Staphylococcal infection [Unknown]
  - Trichorrhexis [Unknown]

NARRATIVE: CASE EVENT DATE: 2018
